FAERS Safety Report 9447900 (Version 4)
Quarter: 2013Q4

REPORT INFORMATION
  Report Type: Report from Study
  Country: US (occurrence: US)
  Receive Date: 20130808
  Receipt Date: 20131022
  Transmission Date: 20140711
  Serious: Yes (Hospitalization, Other)
  Sender: FDA-Public Use
  Company Number: PHHO2013US005678

PATIENT
  Age: 66 Year
  Sex: Male

DRUGS (1)
  1. PLACEBO [Suspect]
     Indication: PANCREATIC CARCINOMA
     Dosage: UNK
     Route: 058
     Dates: start: 20130408, end: 20130414

REACTIONS (9)
  - Gastrointestinal haemorrhage [Recovered/Resolved]
  - Biliary tract infection [Recovering/Resolving]
  - Ascites [Recovered/Resolved]
  - Pancreatic leak [Recovered/Resolved]
  - Urinary tract infection [Recovered/Resolved]
  - Klebsiella infection [Recovered/Resolved]
  - Anaemia [Recovered/Resolved]
  - Lower gastrointestinal haemorrhage [Recovered/Resolved]
  - Bile duct stenosis [Not Recovered/Not Resolved]
